FAERS Safety Report 15279447 (Version 1)
Quarter: 2018Q3

REPORT INFORMATION
  Report Type: Spontaneous
  Country: US (occurrence: US)
  Receive Date: 20180815
  Receipt Date: 20180815
  Transmission Date: 20181010
  Serious: No
  Sender: FDA-Public Use
  Company Number: US-TEVA-2018-US-941320

PATIENT
  Age: 19 Year
  Sex: Female

DRUGS (2)
  1. JUNEL [Suspect]
     Active Substance: ETHINYL ESTRADIOL\NORETHINDRONE ACETATE
     Indication: MENSTRUATION DELAYED
  2. JUNEL [Suspect]
     Active Substance: ETHINYL ESTRADIOL\NORETHINDRONE ACETATE
     Indication: OVARIAN DISORDER
     Dosage: 1 MG/20 MCG
     Dates: start: 20180501

REACTIONS (6)
  - Nausea [Unknown]
  - Dizziness [Unknown]
  - Metrorrhagia [Unknown]
  - Vaginal haemorrhage [Unknown]
  - Headache [Unknown]
  - Intentional dose omission [Unknown]
